FAERS Safety Report 11983221 (Version 10)
Quarter: 2016Q4

REPORT INFORMATION
  Report Type: Report from Study
  Country: BR (occurrence: BR)
  Receive Date: 20160201
  Receipt Date: 20161026
  Transmission Date: 20170206
  Serious: Yes (Other)
  Sender: FDA-Public Use
  Company Number: PHHY2015BR006389

PATIENT
  Age: 67 Year
  Sex: Female
  Weight: 62.3 kg

DRUGS (6)
  1. ZOMETA [Suspect]
     Active Substance: ZOLEDRONIC ACID
     Indication: BREAST CANCER METASTATIC
     Dosage: 1 DF, QMO (1 APPLICATION/AMPOULE EACH 28 DAYS)
     Route: 042
  2. TAMOXIFEN [Concomitant]
     Active Substance: TAMOXIFEN
     Indication: BREAST CANCER
     Dosage: 25 MG, UNK
     Route: 048
  3. AFINITOR [Suspect]
     Active Substance: EVEROLIMUS
     Indication: BREAST CANCER METASTATIC
     Dosage: 10 MG, QD
     Route: 048
     Dates: start: 201302, end: 20150204
  4. AROMASIN [Suspect]
     Active Substance: EXEMESTANE
     Indication: BREAST CANCER
     Dosage: 25 MG, QD
     Route: 048
     Dates: start: 2006
  5. AFINITOR [Suspect]
     Active Substance: EVEROLIMUS
     Dosage: 10 MG, QD
     Route: 048
     Dates: start: 20150214
  6. TAMOXIFEN [Concomitant]
     Active Substance: TAMOXIFEN
     Indication: BONE NEOPLASM

REACTIONS (32)
  - Asthenia [Recovering/Resolving]
  - Aphthous ulcer [Unknown]
  - Cataract [Unknown]
  - Pain [Recovering/Resolving]
  - Aphthous ulcer [Recovered/Resolved]
  - Malaise [Recovering/Resolving]
  - Arthralgia [Unknown]
  - Pharyngitis [Recovered/Resolved]
  - Venous occlusion [Unknown]
  - Oral candidiasis [Recovering/Resolving]
  - Headache [Not Recovered/Not Resolved]
  - Weight decreased [Recovering/Resolving]
  - Oropharyngeal plaque [Unknown]
  - Back pain [Recovered/Resolved]
  - Venous injury [Unknown]
  - Tongue ulceration [Recovered/Resolved]
  - Neck pain [Unknown]
  - Dysstasia [Recovering/Resolving]
  - Decreased appetite [Not Recovered/Not Resolved]
  - Pain in extremity [Recovering/Resolving]
  - Exostosis [Unknown]
  - Tonsillitis [Unknown]
  - Abdominal pain upper [Recovering/Resolving]
  - White blood cell count decreased [Unknown]
  - Fatigue [Unknown]
  - Leukocytosis [Recovered/Resolved]
  - Pain in extremity [Recovered/Resolved]
  - Throat irritation [Unknown]
  - Memory impairment [Unknown]
  - Back pain [Recovering/Resolving]
  - Myopia [Unknown]
  - Vision blurred [Unknown]

NARRATIVE: CASE EVENT DATE: 201302
